FAERS Safety Report 10201363 (Version 2)
Quarter: 2014Q2

REPORT INFORMATION
  Report Type: Spontaneous
  Country: US (occurrence: US)
  Receive Date: 20140528
  Receipt Date: 20140613
  Transmission Date: 20141212
  Serious: No
  Sender: FDA-Public Use
  Company Number: US-JNJFOC-20140509482

PATIENT
  Sex: Male
  Weight: 88.91 kg

DRUGS (2)
  1. DURAGESIC [Suspect]
     Indication: PAIN
     Route: 062
     Dates: start: 2014
  2. DURAGESIC [Suspect]
     Indication: PAIN
     Route: 062
     Dates: start: 2010

REACTIONS (5)
  - Hyperhidrosis [Not Recovered/Not Resolved]
  - Hypermetabolism [Not Recovered/Not Resolved]
  - Drug dose omission [Recovered/Resolved]
  - Inadequate analgesia [Not Recovered/Not Resolved]
  - Product adhesion issue [Unknown]
